FAERS Safety Report 6673116-7 (Version None)
Quarter: 2010Q2

REPORT INFORMATION
  Report Type: 
  Country: None (occurrence: None)
  Receive Date: 20100408
  Receipt Date: 20100330
  Transmission Date: 20101027
  Serious: Yes (Life-Threatening, Hospitalization)
  Sender: FDA-Public Use
  Company Number: JP-JNJFOC-20091103887

PATIENT
  Sex: Male
  Weight: 40 kg

DRUGS (6)
  1. REMICADE [Suspect]
     Indication: JUVENILE ARTHRITIS
     Dosage: 36 INFUSIONS ON UNSPECIFIED DATES
     Route: 042
  2. REMICADE [Suspect]
     Dosage: 1ST INFUSION
     Route: 042
  3. REMICADE [Suspect]
     Dosage: 38TH INFUSION
     Route: 042
  4. METHOTREXATE [Suspect]
     Indication: JUVENILE ARTHRITIS
  5. PREDNISOLONE [Concomitant]
     Indication: JUVENILE ARTHRITIS
  6. ASPIRIN [Concomitant]
     Indication: JUVENILE ARTHRITIS

REACTIONS (1)
  - GERM CELL CANCER [None]
